FAERS Safety Report 21686068 (Version 2)
Quarter: 2022Q4

REPORT INFORMATION
  Report Type: Other
  Country: US (occurrence: None)
  Receive Date: 20221206
  Receipt Date: 20221222
  Transmission Date: 20230112
  Serious: Yes (Death)
  Sender: FDA-Public Use
  Company Number: US-ROCHE-3230844

PATIENT
  Age: 54 Year
  Sex: Female

DRUGS (1)
  1. OCREVUS [Suspect]
     Active Substance: OCRELIZUMAB
     Indication: Relapsing multiple sclerosis
     Dosage: INFUSE 600MG INTRAVENOUSLY EVERY 6 MONTH(S)?2018/07/03, 2018/01/03, 2021/08/06
     Route: 042

REACTIONS (1)
  - Death [Fatal]
